FAERS Safety Report 19098940 (Version 1)
Quarter: 2021Q2

REPORT INFORMATION
  Report Type: Spontaneous
  Country: BE (occurrence: BE)
  Receive Date: 20210406
  Receipt Date: 20210406
  Transmission Date: 20210717
  Serious: Yes (Other)
  Sender: FDA-Public Use
  Company Number: BE-ABBVIE-21K-013-3841284-00

PATIENT
  Age: 40 Year
  Sex: Female

DRUGS (3)
  1. PROPOFOL. [Concomitant]
     Active Substance: PROPOFOL
     Indication: ANAESTHESIA
  2. KETAMINE [Concomitant]
     Active Substance: KETAMINE
     Indication: ANAESTHESIA
  3. SEVOFLURANE. [Suspect]
     Active Substance: SEVOFLURANE
     Indication: ANAESTHESIA
     Route: 055

REACTIONS (1)
  - Brain injury [Recovered/Resolved]
